FAERS Safety Report 18315132 (Version 1)
Quarter: 2020Q3

REPORT INFORMATION
  Report Type: Other
  Country: US (occurrence: US)
  Receive Date: 20200925
  Receipt Date: 20200925
  Transmission Date: 20201103
  Serious: Yes (Hospitalization)
  Sender: FDA-Public Use
  Company Number: US-VERASTEM-2020-00107

PATIENT

DRUGS (3)
  1. COPIKTRA [Suspect]
     Active Substance: DUVELISIB
     Indication: PERIPHERAL T-CELL LYMPHOMA UNSPECIFIED
     Dosage: 75 MG, BID
     Route: 048
     Dates: start: 20200530
  2. ROMIDEPSIN. [Concomitant]
     Active Substance: ROMIDEPSIN
     Indication: PERIPHERAL T-CELL LYMPHOMA UNSPECIFIED
     Dosage: UNK UNK, UNKNOWN
     Route: 042
  3. COPIKTRA [Suspect]
     Active Substance: DUVELISIB
     Dosage: 75 MG X 2 DOSES WITHIN 4 HOURS
     Route: 048
     Dates: start: 20200609, end: 20200610

REACTIONS (10)
  - Hospitalisation [Unknown]
  - Lymphocyte count increased [Unknown]
  - Rash erythematous [Unknown]
  - Feeling abnormal [Unknown]
  - Taste disorder [Unknown]
  - Fatigue [Not Recovered/Not Resolved]
  - Inappropriate schedule of product administration [Recovered/Resolved]
  - Prescribed overdose [Not Recovered/Not Resolved]
  - Product use in unapproved indication [Not Recovered/Not Resolved]
  - Nausea [Not Recovered/Not Resolved]

NARRATIVE: CASE EVENT DATE: 2020
